FAERS Safety Report 17463195 (Version 2)
Quarter: 2020Q1

REPORT INFORMATION
  Report Type: Spontaneous
  Country: IT (occurrence: IT)
  Receive Date: 20200226
  Receipt Date: 20200309
  Transmission Date: 20200409
  Serious: Yes (Hospitalization, Other)
  Sender: FDA-Public Use
  Company Number: IT-AMGEN-ITASP2020030364

PATIENT

DRUGS (5)
  1. AMGEVITA [Suspect]
     Active Substance: ADALIMUMAB
     Dosage: 40 MILLIGRAM, Q2WK
     Route: 065
  2. AMGEVITA [Suspect]
     Active Substance: ADALIMUMAB
     Dosage: UNK MILLIGRAM (ESCALTED DOSE)
     Route: 065
  3. AMGEVITA [Suspect]
     Active Substance: ADALIMUMAB
     Indication: CROHN^S DISEASE
     Dosage: 160 MILLIGRAM
     Route: 065
  4. AMGEVITA [Suspect]
     Active Substance: ADALIMUMAB
     Dosage: 80 MILLIGRAM (AFTER 14 DAYS)
     Route: 065
  5. AZATHIOPRINE. [Concomitant]
     Active Substance: AZATHIOPRINE
     Dosage: UNK

REACTIONS (15)
  - Rash [Unknown]
  - Vomiting [Unknown]
  - Rectal haemorrhage [Unknown]
  - Arthralgia [Unknown]
  - Back pain [Unknown]
  - Headache [Unknown]
  - Crohn^s disease [Unknown]
  - Treatment failure [Unknown]
  - Anaemia [Unknown]
  - Pyrexia [Unknown]
  - Abdominal pain [Unknown]
  - Herpes simplex [Unknown]
  - Diarrhoea [Unknown]
  - Weight decreased [Unknown]
  - Bronchitis [Unknown]
